FAERS Safety Report 5108505-5 (Version None)
Quarter: 2006Q3

REPORT INFORMATION
  Report Type: 
  Country: None (occurrence: None)
  Receive Date: 20060913
  Receipt Date: 20060831
  Transmission Date: 20061208
  Serious: Yes (Life-Threatening, Hospitalization)
  Sender: FDA-Public Use
  Company Number: HQWYE567830MAY06

PATIENT
  Age: 85 Year
  Sex: Male

DRUGS (3)
  1. CONTROLOC (PANTOPRAZOLE, TABLET, DELAYED RELEASE) [Suspect]
     Indication: PROPHYLAXIS
     Dosage: 40 MG 1X PER 1 DAY ORAL
     Route: 048
     Dates: start: 20051226, end: 20051228
  2. CONTROLOC (PANTOPRAZOLE, TABLET, DELAYED RELEASE) [Suspect]
     Indication: PROPHYLAXIS
     Dosage: 40 MG 1X PER 1 DAY ORAL
     Route: 048
     Dates: start: 20060427, end: 20060513
  3. ZOLADEX [Concomitant]

REACTIONS (21)
  - ANAEMIA HAEMOLYTIC AUTOIMMUNE [None]
  - ASPARTATE AMINOTRANSFERASE INCREASED [None]
  - BLOOD BILIRUBIN INCREASED [None]
  - BLOOD BILIRUBIN UNCONJUGATED INCREASED [None]
  - CHOLELITHIASIS [None]
  - CONDITION AGGRAVATED [None]
  - DIABETES MELLITUS [None]
  - DIVERTICULUM [None]
  - DUODENAL POLYP [None]
  - DUODENITIS [None]
  - HAEMORRHOIDS [None]
  - HEPATOMEGALY [None]
  - IMMUNOGLOBULINS INCREASED [None]
  - MARROW HYPERPLASIA [None]
  - NEUTROPHILIA [None]
  - PLATELET COUNT DECREASED [None]
  - PYREXIA [None]
  - SPLENOMEGALY [None]
  - VARICES OESOPHAGEAL [None]
  - VASODILATATION [None]
  - WHITE BLOOD CELL COUNT INCREASED [None]
